FAERS Safety Report 5083083-8 (Version None)
Quarter: 2006Q3

REPORT INFORMATION
  Report Type: 
  Country: None (occurrence: None)
  Receive Date: 20060817
  Receipt Date: 20060714
  Transmission Date: 20061208
  Serious: Yes (Disabling)
  Sender: FDA-Public Use
  Company Number: US-ALLERGAN-0603129US

PATIENT
  Sex: Female

DRUGS (2)
  1. BOTOX [Concomitant]
     Indication: DRUG USE FOR UNKNOWN INDICATION
  2. BOTULINUM TOXIN TYPE A UNK [Suspect]
     Indication: SKIN WRINKLING

REACTIONS (3)
  - PARALYSIS [None]
  - RESPIRATORY DISORDER [None]
  - VOCAL CORD PARALYSIS [None]
